FAERS Safety Report 10867431 (Version 1)
Quarter: 2015Q1

REPORT INFORMATION
  Report Type: Report from Study
  Country: US (occurrence: US)
  Receive Date: 20150225
  Receipt Date: 20150225
  Transmission Date: 20150721
  Serious: Yes (Other)
  Sender: FDA-Public Use
  Company Number: US-GILEAD-2015-0138298

PATIENT
  Age: 39 Year
  Sex: Female

DRUGS (2)
  1. SOFOSBUVIR [Suspect]
     Active Substance: SOFOSBUVIR
     Indication: CHRONIC HEPATITIS C
     Dosage: 400 MG, UNK
     Route: 048
     Dates: start: 20141125, end: 20150216
  2. RIBAVIRIN. [Concomitant]
     Active Substance: RIBAVIRIN
     Dosage: UNK
     Dates: start: 20141125, end: 20150216

REACTIONS (7)
  - Back pain [Unknown]
  - Panic attack [Unknown]
  - Dyspnoea [Unknown]
  - Paralysis [Unknown]
  - Hyperhidrosis [Unknown]
  - Irritability [Unknown]
  - Tremor [Unknown]
